FAERS Safety Report 19132296 (Version 18)
Quarter: 2022Q4

REPORT INFORMATION
  Report Type: Report from Study
  Country: CH (occurrence: None)
  Receive Date: 20210414
  Receipt Date: 20221104
  Transmission Date: 20230113
  Serious: Yes (Hospitalization)
  Sender: FDA-Public Use
  Company Number: CH-ROCHE-2806683

PATIENT
  Age: 78 Year
  Sex: Male
  Weight: 68.5 kg

DRUGS (22)
  1. ATEZOLIZUMAB [Suspect]
     Active Substance: ATEZOLIZUMAB
     Indication: Malignant neoplasm of unknown primary site
     Dosage: ON 19/MAR/2021, HE RECEIVED LAST DOSE OF ATEZOLIUZMAB (1200 MG) PRIOR TO ONSET OF SERIOUS ADVERSE EV
     Route: 042
     Dates: start: 20210111
  2. CISPLATIN [Suspect]
     Active Substance: CISPLATIN
     Indication: Malignant neoplasm of unknown primary site
     Dosage: ON 15/DEC/2020, HE RECEIVED LAST DOSE OF CISPLATIN (44.8 MG) PRIOR TO ONSET OF SERIOUS ADVERSE EVENT
     Route: 042
     Dates: start: 20201020
  3. CISPLATIN [Suspect]
     Active Substance: CISPLATIN
     Dosage: ON 18/JAN/2021, HE RECEIVED LAST DOSE OF CISPLATIN (45.3 MG) PRIOR TO ONSET OF SERIOUS ADVERSE EVENT
     Route: 042
     Dates: start: 20210111
  4. GEMCITABINE [Suspect]
     Active Substance: GEMCITABINE
     Indication: Malignant neoplasm of unknown primary site
     Dosage: ON 15/DEC/2020, HE RECEIVED MOST RECENT DOSE OF GEMCITABINE (1794 MG) PRIOR TO ONSET OF SERIOUS ADVE
     Route: 042
     Dates: start: 20201020
  5. GEMCITABINE [Suspect]
     Active Substance: GEMCITABINE
     Dosage: ON 19/MAR/2021, HE RECEIVED LAST DOSE OF GEMCITABINE (1846 MG) PRIOR TO ONSET OF SERIOUS ADVERSE EVE
     Route: 042
     Dates: start: 20210111
  6. CARBOPLATIN [Suspect]
     Active Substance: CARBOPLATIN
     Indication: Malignant neoplasm of unknown primary site
     Dosage: ON 23/FEB/2021, HE RECEIVED LAST DOSE OF CARBOPLATIN (380 MG) PRIOR TO ONSET OF SERIOUS ADVERSE EVEN
     Route: 042
     Dates: start: 20210202
  7. ACETAMINOPHEN [Concomitant]
     Active Substance: ACETAMINOPHEN
  8. EZETIMIBE [Concomitant]
     Active Substance: EZETIMIBE
     Indication: Prophylaxis
  9. TAMSULOSIN HYDROCHLORIDE [Concomitant]
     Active Substance: TAMSULOSIN HYDROCHLORIDE
     Indication: Prophylaxis
  10. PROSTAGUTT [Concomitant]
     Indication: Prophylaxis
  11. POLYETHYLENE GLYCOLS [Concomitant]
     Active Substance: POLYETHYLENE GLYCOLS
     Indication: Prophylaxis
  12. TINZAPARIN [Concomitant]
     Active Substance: TINZAPARIN
     Indication: Embolism
     Dosage: 12000
     Route: 030
     Dates: start: 20210331
  13. AMOXICILLIN\CLAVULANATE POTASSIUM [Concomitant]
     Active Substance: AMOXICILLIN\CLAVULANATE POTASSIUM
     Indication: Skin infection
     Route: 048
     Dates: start: 20210325, end: 20210401
  14. ASPIRIN [Concomitant]
     Active Substance: ASPIRIN
     Indication: Prophylaxis
  15. APIXABAN [Concomitant]
     Active Substance: APIXABAN
     Indication: Embolism
     Route: 048
     Dates: start: 20210504
  16. DEXAMETHASONE [Concomitant]
     Active Substance: DEXAMETHASONE
     Indication: Premedication
     Dosage: 3 X 4 MG?(MILLIGRAM)?NEXT DOSES ON 12 JAN 2021, 18 JAN 2021, 19 JAN 2021, 02 FEB 2021, 09 FEB 2021,
     Route: 048
     Dates: start: 20210111, end: 20210111
  17. APREPITANT [Concomitant]
     Active Substance: APREPITANT
     Indication: Premedication
     Dosage: NEXT DOSES ON 12 JAN 2021, 18 JAN 2021, 19 JAN 2021, 02 FEB 2021, 09 FEB 2021, 23 FEB 2021, 02 MAR 2
     Route: 048
     Dates: start: 20210111, end: 20210111
  18. PALONOSETRON [Concomitant]
     Active Substance: PALONOSETRON
     Indication: Premedication
     Dosage: NEXT DOSES ON 12 JAN 2021, 18 JAN 2021, 19 JAN 2021, 02 FEB 2021, 09 FEB 2021, 23 FEB 2021, 02 MAR 2
     Route: 042
     Dates: start: 20210111, end: 20210111
  19. METOCLOPRAMIDE HYDROCHLORIDE [Concomitant]
     Active Substance: METOCLOPRAMIDE HYDROCHLORIDE
     Indication: Premedication
     Dosage: NEXT DOSES ON 12 JAN 2021, 18 JAN 2021, 19 JAN 2021, 02 FEB 2021, 09 FEB 2021, 23 FEB 2021, 02 MAR 2
     Route: 048
     Dates: start: 20210111, end: 20210201
  20. LORAZEPAM [Concomitant]
     Active Substance: LORAZEPAM
     Indication: Premedication
     Dosage: NEXT DOSES ON 12 JAN 2021, 18 JAN 2021, 19 JAN 2021, 02 FEB 2021, 09 FEB 2021, 23 FEB 2021, 02 MAR 2
     Route: 048
     Dates: start: 20210111, end: 20210201
  21. FILGRASTIM [Concomitant]
     Active Substance: FILGRASTIM
     Dosage: 30 (OTHER)
     Route: 030
     Dates: start: 20210830, end: 20210901
  22. FILGRASTIM [Concomitant]
     Active Substance: FILGRASTIM
     Dosage: 30 (OTHER)
     Route: 030
     Dates: start: 20210920, end: 20210922

REACTIONS (1)
  - Arthritis [Recovered/Resolved]

NARRATIVE: CASE EVENT DATE: 20210405
